FAERS Safety Report 14456534 (Version 2)
Quarter: 2018Q1

REPORT INFORMATION
  Report Type: Report from Study
  Country: JP (occurrence: JP)
  Receive Date: 20180130
  Receipt Date: 20180221
  Transmission Date: 20180509
  Serious: Yes (Death, Other)
  Sender: FDA-Public Use
  Company Number: JP-ASTRAZENECA-2017SF16070

PATIENT
  Age: 78 Year
  Sex: Male
  Weight: 51 kg

DRUGS (7)
  1. TAGRISSO [Suspect]
     Active Substance: OSIMERTINIB
     Indication: NON-SMALL CELL LUNG CANCER
     Route: 048
     Dates: start: 20160416, end: 20170122
  2. DENOTAS [Concomitant]
     Active Substance: CALCIUM CARBONATE\CHOLECALCIFEROL\MAGNESIUM CARBONATE
     Indication: METASTASES TO BONE
     Dosage: 2.0DF UNKNOWN
     Route: 048
     Dates: end: 20170127
  3. RANMARK [Concomitant]
     Active Substance: DENOSUMAB
     Indication: METASTASES TO BONE
     Dosage: 120.0MG UNKNOWN
     Dates: start: 20160805, end: 20170113
  4. PROMAC [Concomitant]
     Active Substance: NITROFURANTOIN
     Indication: CHRONIC GASTRITIS
     Dosage: 150.0MG UNKNOWN
     Route: 048
     Dates: end: 20170127
  5. ALLEGRA [Concomitant]
     Active Substance: FEXOFENADINE HYDROCHLORIDE
     Indication: RHINITIS ALLERGIC
     Dosage: 120.0MG UNKNOWN
     Route: 048
     Dates: end: 20160915
  6. PREDONINE [Suspect]
     Active Substance: PREDNISOLONE
     Dosage: 20.0MG UNKNOWN
     Route: 048
     Dates: start: 20160930, end: 20170127
  7. MAGMITT [Concomitant]
     Active Substance: MAGNESIUM OXIDE
     Indication: CONSTIPATION
     Dosage: 990.0MG UNKNOWN
     Route: 048
     Dates: end: 20160901

REACTIONS (8)
  - Decreased appetite [Recovering/Resolving]
  - Gastrooesophageal reflux disease [Recovering/Resolving]
  - Rhinitis allergic [Recovering/Resolving]
  - Leukopenia [Not Recovered/Not Resolved]
  - Chronic gastritis [Recovering/Resolving]
  - Interstitial lung disease [Fatal]
  - Thrombocytopenia [Not Recovered/Not Resolved]
  - Pruritus [Not Recovered/Not Resolved]

NARRATIVE: CASE EVENT DATE: 20160422
